FAERS Safety Report 5981773-3 (Version None)
Quarter: 2008Q4

REPORT INFORMATION
  Report Type: 
  Country: None (occurrence: None)
  Receive Date: 20081205
  Receipt Date: 20081203
  Transmission Date: 20090506
  Serious: Yes (Death)
  Sender: FDA-Public Use
  Company Number: US-B.I. PHARMACEUTICALS,INC./RIDGEFIELD-2008-BP-18062BP

PATIENT
  Sex: Male

DRUGS (5)
  1. COMBIVENT [Suspect]
  2. LASIX [Concomitant]
  3. COUMADIN [Concomitant]
  4. TOPROL-XL [Concomitant]
  5. OXYCODONE HCL [Concomitant]

REACTIONS (1)
  - DEATH [None]
